FAERS Safety Report 22738498 (Version 6)
Quarter: 2024Q3

REPORT INFORMATION
  Report Type: Spontaneous
  Country: US (occurrence: US)
  Receive Date: 20230721
  Receipt Date: 20240816
  Transmission Date: 20241016
  Serious: No
  Sender: PFIZER
  Company Number: US-PFIZER INC-PV202200132809

PATIENT
  Age: 88 Year
  Sex: Female

DRUGS (1)
  1. PREMARIN [Suspect]
     Active Substance: ESTROGENS, CONJUGATED
     Indication: Hot flush
     Dosage: 0.45 MG (TAKE IT MONDAY, WEDNESDAY, AND FRIDAY)

REACTIONS (3)
  - Terminal insomnia [Unknown]
  - Emotional disorder [Unknown]
  - Off label use [Unknown]
